FAERS Safety Report 7535421-1 (Version None)
Quarter: 2011Q2

REPORT INFORMATION
  Report Type: 
  Country: None (occurrence: None)
  Receive Date: 20110609
  Receipt Date: 20080118
  Transmission Date: 20111010
  Serious: Yes (Life-Threatening, Hospitalization, Disabling, Other)
  Sender: FDA-Public Use
  Company Number: PHFR2007GB03674

PATIENT
  Sex: Male

DRUGS (6)
  1. SIMVASTATIN [Concomitant]
     Indication: HYPERCHOLESTEROLAEMIA
     Dosage: 20 MG, UNK
     Route: 048
     Dates: start: 20070601
  2. RISEDRONATE SODIUM [Concomitant]
     Indication: OSTEOPOROSIS
     Dosage: 35 MG, UNK
     Route: 048
     Dates: start: 20070601
  3. CLOZAPINE [Suspect]
     Indication: SCHIZOPHRENIA
     Dosage: 175 MG, UNK
     Route: 048
     Dates: start: 20071018
  4. LITHIUM CARBONATE [Concomitant]
     Indication: DEPRESSION
     Dosage: 800 MG, UNK
     Route: 048
     Dates: start: 20070808
  5. MIRTAZAPINE [Concomitant]
     Indication: DEPRESSION
     Dosage: 45 MG, UNK
     Route: 048
     Dates: start: 20070601
  6. CLOZAPINE [Suspect]
     Dosage: 500MG/DAY
     Route: 048
     Dates: start: 20071201, end: 20080110

REACTIONS (9)
  - HEMIPARESIS [None]
  - CEREBRAL ARTERY THROMBOSIS [None]
  - LOWER RESPIRATORY TRACT INFECTION [None]
  - CEREBROVASCULAR ACCIDENT [None]
  - INFARCTION [None]
  - CAROTID ARTERY STENOSIS [None]
  - NEUTROPHIL COUNT INCREASED [None]
  - WHITE BLOOD CELL COUNT INCREASED [None]
  - SPEECH DISORDER [None]
